FAERS Safety Report 10264664 (Version 1)
Quarter: 2014Q2

REPORT INFORMATION
  Report Type: Spontaneous
  Country: US (occurrence: US)
  Receive Date: 20140627
  Receipt Date: 20140627
  Transmission Date: 20141212
  Serious: No
  Sender: FDA-Public Use
  Company Number: US-BAYER-2014-096916

PATIENT
  Age: 14 Month
  Sex: Male
  Weight: 10 kg

DRUGS (2)
  1. BAYER CHEWABLE LOW DOSE ASPIRIN CHERRY FLAVORED [Suspect]
     Dosage: 2 DF, UNK
     Route: 048
  2. BAYER CHEWABLE LOW DOSE ASPIRIN CHERRY FLAVORED [Suspect]
     Dosage: 2 DF, ONCE
     Route: 048
     Dates: start: 20140625, end: 20140625

REACTIONS (3)
  - Accidental exposure to product by child [None]
  - Failure of child resistant mechanism for pharmaceutical product [None]
  - Drug administered to patient of inappropriate age [None]
